FAERS Safety Report 6282516-9 (Version None)
Quarter: 2009Q3

REPORT INFORMATION
  Report Type: 
  Country: None (occurrence: None)
  Receive Date: 20090724
  Receipt Date: 20090715
  Transmission Date: 20100115
  Serious: Yes (Other)
  Sender: FDA-Public Use
  Company Number: NZ-AVENTIS-200917199GDDC

PATIENT
  Sex: Male

DRUGS (2)
  1. LANTUS [Suspect]
  2. AUTOPEN INSULIN INJECTION PEN [Suspect]

REACTIONS (1)
  - DIABETIC KETOACIDOSIS [None]
